FAERS Safety Report 15220271 (Version 3)
Quarter: 2019Q1

REPORT INFORMATION
  Report Type: Spontaneous
  Country: RO (occurrence: RO)
  Receive Date: 20180731
  Receipt Date: 20190327
  Transmission Date: 20190417
  Serious: Yes (Hospitalization, Other)
  Sender: FDA-Public Use
  Company Number: RO-ACCORD-070103

PATIENT
  Age: 58 Year
  Sex: Male

DRUGS (11)
  1. EXVIERA [Suspect]
     Active Substance: DASABUVIR
     Indication: HEPATITIS C
     Route: 048
     Dates: start: 20171016, end: 20171115
  2. TACROLIMUS. [Suspect]
     Active Substance: TACROLIMUS
     Indication: IMMUNOSUPPRESSION
     Dosage: DOSE: 20 NG/ML
     Route: 048
     Dates: start: 2008
  3. RITONAVIR. [Interacting]
     Active Substance: RITONAVIR
     Indication: HEPATITIS C
     Route: 048
     Dates: start: 2017
  4. PARITAPREVIR [Suspect]
     Active Substance: PARITAPREVIR
     Indication: HEPATITIS C
     Dates: start: 2017
  5. FAMOTIDINE. [Concomitant]
     Active Substance: FAMOTIDINE
     Indication: RENAL TRANSPLANT
     Route: 048
  6. DASABUVIR [Suspect]
     Active Substance: DASABUVIR
     Indication: HEPATIC CIRRHOSIS
     Dates: start: 2017
  7. MYCOPHENOLIC ACID. [Concomitant]
     Active Substance: MYCOPHENOLIC ACID
     Indication: IMMUNOSUPPRESSION
     Dates: start: 2008
  8. AMLODIPINE [Concomitant]
     Active Substance: AMLODIPINE BESYLATE
     Indication: RENAL TRANSPLANT
     Route: 048
  9. OMBITASVIR [Suspect]
     Active Substance: OMBITASVIR
     Indication: HEPATIC CIRRHOSIS
     Dates: start: 2017
  10. VIEKIRAX [Interacting]
     Active Substance: OMBITASVIR\PARITAPREVIR\RITONAVIR
     Indication: HEPATIC CIRRHOSIS
     Route: 048
     Dates: start: 20171016, end: 20171115
  11. PREDNISONE. [Concomitant]
     Active Substance: PREDNISONE
     Indication: IMMUNOSUPPRESSION
     Route: 048
     Dates: start: 2008

REACTIONS (5)
  - Inappropriate antidiuretic hormone secretion [Recovered/Resolved]
  - Arthritis bacterial [Recovering/Resolving]
  - Drug level increased [Recovered/Resolved]
  - Drug interaction [Unknown]
  - Hyponatraemia [Recovered/Resolved]

NARRATIVE: CASE EVENT DATE: 20171030
